FAERS Safety Report 20379866 (Version 1)
Quarter: 2022Q1

REPORT INFORMATION
  Report Type: Spontaneous
  Country: US (occurrence: None)
  Receive Date: 20220126
  Receipt Date: 20220126
  Transmission Date: 20220423
  Serious: Yes (Hospitalization)
  Sender: FDA-Public Use
  Company Number: None

PATIENT
  Sex: Female

DRUGS (11)
  1. CAPECITABINE [Suspect]
     Active Substance: CAPECITABINE
     Indication: Breast cancer
     Dosage: FREQUENCY : TWICE A DAY;?
     Route: 048
     Dates: start: 20201103
  2. COREG TAB 12.5MG [Concomitant]
  3. DEXAMETHASON TAB 1.5MG [Concomitant]
  4. EFFEXOR XR CAP 150MG [Concomitant]
  5. FLUDROCORT TAB 0.1 MG [Concomitant]
  6. GABAPENTIN TAB 600MG [Concomitant]
  7. HUMALOG [Concomitant]
     Active Substance: INSULIN LISPRO
  8. KANJINTI SOL 150MG [Concomitant]
  9. VITAMIN 86 TAB 100MG [Concomitant]
  10. VITAMIN D3 CAP 5000UNIT [Concomitant]
  11. XGEVA [Concomitant]
     Active Substance: DENOSUMAB

REACTIONS (3)
  - Therapy interrupted [None]
  - Diabetes mellitus [None]
  - Nausea [None]
